FAERS Safety Report 14551350 (Version 1)
Quarter: 2018Q1

REPORT INFORMATION
  Report Type: Report from Study
  Country: US (occurrence: US)
  Receive Date: 20180220
  Receipt Date: 20180220
  Transmission Date: 20180509
  Serious: Yes (Death, Life-Threatening)
  Sender: FDA-Public Use
  Company Number: US-ROCHE-2066961

PATIENT
  Age: 49 Year
  Sex: Female
  Weight: 81.72 kg

DRUGS (1)
  1. OCREVUS [Suspect]
     Active Substance: OCRELIZUMAB
     Indication: PRODUCT USED FOR UNKNOWN INDICATION
     Dosage: THE SECOND INFUSION OF OCRELIZUMAB WAS FINISHED ON 17/AUG/2017
     Route: 042

REACTIONS (4)
  - Decubitus ulcer [Not Recovered/Not Resolved]
  - Influenza [Fatal]
  - Decubitus ulcer [Unknown]
  - Pneumonia [Recovered/Resolved]

NARRATIVE: CASE EVENT DATE: 20171108
